FAERS Safety Report 7928445-3 (Version None)
Quarter: 2011Q4

REPORT INFORMATION
  Report Type: 
  Country: None (occurrence: None)
  Receive Date: 20111118
  Receipt Date: 20111107
  Transmission Date: 20120403
  Serious: Yes (Other)
  Sender: FDA-Public Use
  Company Number: PHHY2011FR098609

PATIENT
  Age: 72 Year
  Sex: Female

DRUGS (1)
  1. RASILEZ [Suspect]
     Indication: HYPERTENSION
     Dosage: UNK

REACTIONS (3)
  - RENAL ARTERY STENOSIS [None]
  - HYPOTENSION [None]
  - RENAL IMPAIRMENT [None]
